FAERS Safety Report 10709415 (Version 1)
Quarter: 2015Q1

REPORT INFORMATION
  Report Type: Spontaneous
  Country: US (occurrence: None)
  Receive Date: 20150113
  Receipt Date: 20150113
  Transmission Date: 20150721
  Serious: No
  Sender: FDA-Public Use
  Company Number: None

PATIENT
  Age: 64 Year
  Sex: Female
  Weight: 76.2 kg

DRUGS (5)
  1. VINCRISTINE [Suspect]
     Active Substance: VINCRISTINE
     Dates: start: 20141210
  2. PROCARBAZINE [Suspect]
     Active Substance: PROCARBAZINE
     Dates: start: 20141127
  3. RITUXIMAB [Suspect]
     Active Substance: RITUXIMAB
     Dates: start: 20141209
  4. LOVENOX [Concomitant]
     Active Substance: ENOXAPARIN SODIUM
  5. METHOTREXATE [Suspect]
     Active Substance: METHOTREXATE
     Dates: start: 20141210

REACTIONS (2)
  - Pneumonia [None]
  - Rectal haemorrhage [None]

NARRATIVE: CASE EVENT DATE: 20141229
